FAERS Safety Report 8462996-0 (Version None)
Quarter: 2012Q2

REPORT INFORMATION
  Report Type: 
  Country: None (occurrence: None)
  Receive Date: 20120323
  Receipt Date: 20110611
  Transmission Date: 20120825
  Serious: Yes (Hospitalization)
  Sender: FDA-Public Use
  Company Number: 163-21880-11061778

PATIENT
  Age: 62 Year
  Sex: Female

DRUGS (12)
  1. REVLIMID [Suspect]
     Indication: MULTIPLE MYELOMA
     Dosage: 15 MG, PO
     Route: 048
     Dates: start: 20100111, end: 20100328
  2. NEUPOGEN [Concomitant]
  3. HYDROCHLOROTHIAZIDE [Concomitant]
  4. K-TAB [Concomitant]
  5. DEXAMETHASONE [Concomitant]
  6. LOVASTATIN [Concomitant]
  7. AVELOX [Concomitant]
  8. OXYCODONE HCL [Concomitant]
  9. DECADRON [Concomitant]
  10. ATENOLOL [Concomitant]
  11. AMLODIPINE [Concomitant]
  12. COUMADIN [Concomitant]

REACTIONS (5)
  - CHILLS [None]
  - PANCYTOPENIA [None]
  - PYREXIA [None]
  - ASTHENIA [None]
  - URINARY TRACT INFECTION BACTERIAL [None]
